FAERS Safety Report 4549932-4 (Version None)
Quarter: 2004Q4

REPORT INFORMATION
  Report Type: 
  Country: None (occurrence: None)
  Receive Date: 20041230
  Receipt Date: 20040514
  Transmission Date: 20050328
  Serious: Yes (Death)
  Sender: FDA-Public Use
  Company Number: 04-05-0700

PATIENT
  Age: 44 Year
  Sex: Male

DRUGS (5)
  1. CLOZAPINE [Suspect]
     Indication: SCHIZOPHRENIA
     Dosage: 650MG QHS ORAL
     Route: 048
     Dates: start: 20030801, end: 20040504
  2. LOXITANE [Concomitant]
  3. TRILEPTAL [Concomitant]
  4. RESTORIL [Concomitant]
  5. MIDODRINE HCL [Concomitant]

REACTIONS (1)
  - UNEVALUABLE EVENT [None]
